FAERS Safety Report 8266333-6 (Version None)
Quarter: 2012Q2

REPORT INFORMATION
  Report Type: 
  Country: None (occurrence: None)
  Receive Date: 20120406
  Receipt Date: 20120403
  Transmission Date: 20120825
  Serious: No
  Sender: FDA-Public Use
  Company Number: US-PFIZER INC-2012085386

PATIENT
  Sex: Female
  Weight: 76.644 kg

DRUGS (5)
  1. AMBIEN [Concomitant]
     Indication: INSOMNIA
     Dosage: 10 MG, AS NEEDED
  2. WELLBUTRIN [Concomitant]
     Dosage: UNK
     Dates: end: 20110101
  3. ZOLOFT [Suspect]
     Indication: DEPRESSION
     Dosage: UNK
  4. PAXIL [Concomitant]
     Dosage: UNK
  5. ZYRTEC [Concomitant]
     Indication: HYPERSENSITIVITY
     Dosage: 10 MG, DAILY

REACTIONS (2)
  - FEELING ABNORMAL [None]
  - FATIGUE [None]
